FAERS Safety Report 5934365-6 (Version None)
Quarter: 2008Q4

REPORT INFORMATION
  Report Type: 
  Country: None (occurrence: None)
  Receive Date: 20081027
  Receipt Date: 20081013
  Transmission Date: 20090506
  Serious: Yes (Hospitalization, Other)
  Sender: FDA-Public Use
  Company Number: ERP06000018

PATIENT
  Age: 55 Year
  Sex: Male

DRUGS (8)
  1. DANTRIUM [Suspect]
     Indication: MUSCLE SPASTICITY
     Dosage: 100MG AM 25MG NOON 50MG PM, ORAL; 175 MG, DAILY, ORAL
     Route: 048
     Dates: start: 19800101, end: 20060127
  2. DANTRIUM [Suspect]
     Indication: MUSCLE SPASTICITY
     Dosage: 100MG AM 25MG NOON 50MG PM, ORAL; 175 MG, DAILY, ORAL
     Route: 048
     Dates: start: 20060129
  3. FENOFIBRATE [Suspect]
     Indication: HYPERCHOLESTEROLAEMIA
     Dosage: 1 DF, EVENING,
     Dates: start: 20060101
  4. PRAVASTATIN [Suspect]
     Indication: HYPERCHOLESTEROLAEMIA
     Dosage: 20 MG, DAILY, ORAL
     Route: 048
     Dates: start: 20060129, end: 20060101
  5. PRAVASTATIN [Suspect]
     Indication: HYPERCHOLESTEROLAEMIA
     Dosage: 20 MG, DAILY, ORAL
     Route: 048
     Dates: start: 19980101, end: 20060127
  6. CELECTOL [Suspect]
     Indication: HYPERTENSION
     Dosage: 1 DF, EVENING, ORAL
     Route: 048
     Dates: start: 20051101
  7. VISKEN [Concomitant]
  8. CREON /00014701/ (PANCREATIN) [Concomitant]

REACTIONS (11)
  - BLOOD ALKALINE PHOSPHATASE DECREASED [None]
  - EOSINOPHIL COUNT INCREASED [None]
  - GASTROINTESTINAL MOTILITY DISORDER [None]
  - HAEMOGLOBIN DECREASED [None]
  - HYPERCHOLESTEROLAEMIA [None]
  - HYPERTENSION [None]
  - LYMPHOCYTE COUNT DECREASED [None]
  - PANCREATIC PSEUDOCYST [None]
  - PANCREATITIS ACUTE [None]
  - PANCREATOLITHIASIS [None]
  - RED BLOOD CELL COUNT DECREASED [None]
